FAERS Safety Report 8300631-2 (Version None)
Quarter: 2012Q2

REPORT INFORMATION
  Report Type: 
  Country: None (occurrence: None)
  Receive Date: 20120420
  Receipt Date: 20120413
  Transmission Date: 20120825
  Serious: No
  Sender: FDA-Public Use
  Company Number: PHEH2012US008319

PATIENT
  Sex: Female

DRUGS (2)
  1. TASIGNA [Suspect]
     Indication: GASTROINTESTINAL CARCINOMA
     Dosage: 300 MG, BID
     Route: 048
     Dates: start: 20111201
  2. LEVOTHYROXINE SODIUM [Concomitant]

REACTIONS (3)
  - PRURITUS [None]
  - ERYTHEMA [None]
  - BURNING SENSATION [None]
